FAERS Safety Report 7933776-7 (Version None)
Quarter: 2011Q4

REPORT INFORMATION
  Report Type: 
  Country: None (occurrence: None)
  Receive Date: 20111122
  Receipt Date: 20111110
  Transmission Date: 20120403
  Serious: Yes (Hospitalization)
  Sender: FDA-Public Use
  Company Number: US-BAYER-2011-075020

PATIENT
  Sex: Female

DRUGS (7)
  1. INHALER [Concomitant]
     Dosage: UNK
     Dates: start: 20000101
  2. YAZ [Suspect]
     Indication: MENSTRUAL CYCLE MANAGEMENT
  3. YAZ [Suspect]
     Indication: PREMENSTRUAL SYNDROME
     Dosage: UNK
     Dates: start: 20050101, end: 20070101
  4. YASMIN [Suspect]
     Indication: PREMENSTRUAL SYNDROME
     Dosage: UNK
     Dates: start: 20050101, end: 20070101
  5. TOPAMAX [Concomitant]
     Dosage: UNK
     Dates: start: 20050101, end: 20070101
  6. MOTRIN [Concomitant]
  7. YASMIN [Suspect]
     Indication: MENSTRUAL CYCLE MANAGEMENT

REACTIONS (3)
  - PAIN [None]
  - INJURY [None]
  - GALLBLADDER INJURY [None]
